FAERS Safety Report 25947300 (Version 1)
Quarter: 2025Q4

REPORT INFORMATION
  Report Type: Report from Study
  Country: MX (occurrence: MX)
  Receive Date: 20251022
  Receipt Date: 20251022
  Transmission Date: 20260118
  Serious: Yes (Other)
  Sender: ROCHE
  Company Number: MX-ROCHE-3414855

PATIENT
  Age: 71 Year
  Sex: Female
  Weight: 50.0 kg

DRUGS (4)
  1. KADCYLA [Suspect]
     Active Substance: ADO-TRASTUZUMAB EMTANSINE
     Indication: Breast cancer
     Route: 042
     Dates: start: 20221124, end: 20230829
  2. KADCYLA [Suspect]
     Active Substance: ADO-TRASTUZUMAB EMTANSINE
     Route: 042
     Dates: start: 20230912
  3. FILATIL [Concomitant]
     Dosage: 3 INJECTIONS - FREQUENCY WAS NOT REPORTED
  4. FEMARA [Concomitant]
     Active Substance: LETROZOLE
     Indication: Neoplasm malignant
     Dates: start: 202210

REACTIONS (17)
  - Platelet count decreased [Not Recovered/Not Resolved]
  - White blood cell count decreased [Recovered/Resolved]
  - Neutrophil count decreased [Recovered/Resolved]
  - White blood cell count increased [Unknown]
  - Mean cell haemoglobin increased [Unknown]
  - Platelet count decreased [Recovering/Resolving]
  - White blood cell count decreased [Unknown]
  - Neutrophil count decreased [Unknown]
  - High density lipoprotein [Unknown]
  - Lipids decreased [Unknown]
  - Aspartate aminotransferase increased [Unknown]
  - Alanine aminotransferase increased [Unknown]
  - Gamma-glutamyltransferase increased [Unknown]
  - Blood creatine phosphokinase MB increased [Unknown]
  - Amylase increased [Unknown]
  - Platelet count decreased [Unknown]
  - Drug ineffective [Unknown]

NARRATIVE: CASE EVENT DATE: 20221124
